FAERS Safety Report 8948036 (Version 3)
Quarter: 2013Q1

REPORT INFORMATION
  Report Type: Spontaneous
  Country: US (occurrence: US)
  Receive Date: 20121204
  Receipt Date: 20130326
  Transmission Date: 20140127
  Serious: No
  Sender: FDA-Public Use
  Company Number: US-ASTRAZENECA-2012SE15547

PATIENT
  Age: 57 Year
  Sex: Female

DRUGS (4)
  1. NEXIUM [Suspect]
     Indication: GASTROOESOPHAGEAL REFLUX DISEASE
     Route: 048
  2. NEXIUM [Suspect]
     Indication: DYSPEPSIA
     Route: 048
  3. NEXIUM [Suspect]
     Indication: GASTROOESOPHAGEAL REFLUX DISEASE
     Route: 048
  4. NEXIUM [Suspect]
     Indication: DYSPEPSIA
     Route: 048

REACTIONS (7)
  - Decreased appetite [Unknown]
  - Throat irritation [Unknown]
  - Vomiting [Unknown]
  - Malaise [Unknown]
  - Off label use [Unknown]
  - Drug dose omission [Unknown]
  - Drug ineffective [Unknown]
